FAERS Safety Report 12297881 (Version 1)
Quarter: 2016Q2

REPORT INFORMATION
  Report Type: Spontaneous
  Country: US (occurrence: US)
  Receive Date: 20160422
  Receipt Date: 20160422
  Transmission Date: 20160815
  Serious: Yes (Other)
  Sender: FDA-Public Use
  Company Number: US-PFIZER INC-2016220770

PATIENT
  Age: 81 Year
  Sex: Female
  Weight: 59 kg

DRUGS (4)
  1. XALATAN [Suspect]
     Active Substance: LATANOPROST
     Dosage: 1 DROP IN BOTH EYES, UNK
     Route: 047
     Dates: start: 20160329
  2. PRAVASTATIN [Concomitant]
     Active Substance: PRAVASTATIN\PRAVASTATIN SODIUM
     Indication: BLOOD CHOLESTEROL ABNORMAL
     Dosage: 40 MG, 1X/DAY, IN THE EVENING
     Route: 048
     Dates: start: 2012
  3. XALATAN [Suspect]
     Active Substance: LATANOPROST
     Indication: GLAUCOMA
     Dosage: 1 DROP IN BOTH EYES, UNK
     Route: 047
  4. LISINOPRIL. [Concomitant]
     Active Substance: LISINOPRIL
     Indication: PREHYPERTENSION
     Dosage: 2.5 MG, 1X/DAY, IN THE MORNING
     Route: 048
     Dates: start: 2004

REACTIONS (5)
  - Madarosis [Not Recovered/Not Resolved]
  - Upper limb fracture [Unknown]
  - Lacrimation increased [Not Recovered/Not Resolved]
  - Eye irritation [Not Recovered/Not Resolved]
  - Product quality issue [Not Recovered/Not Resolved]

NARRATIVE: CASE EVENT DATE: 2016
